FAERS Safety Report 10028316 (Version 3)
Quarter: 2014Q2

REPORT INFORMATION
  Report Type: Spontaneous
  Country: GB (occurrence: GB)
  Receive Date: 20140321
  Receipt Date: 20140509
  Transmission Date: 20141212
  Serious: Yes (Hospitalization, Other)
  Sender: FDA-Public Use
  Company Number: PHFR2014GB002274

PATIENT
  Age: 62 Year
  Sex: Male
  Weight: 95 kg

DRUGS (7)
  1. CLOZARIL [Suspect]
     Dosage: 62.5 MG, DAILY
     Route: 048
     Dates: start: 20140305
  2. CLOZARIL [Suspect]
     Dosage: UNK
     Route: 048
     Dates: start: 20140308, end: 20140322
  3. EPILIM CHRONO [Concomitant]
     Indication: EPILEPSY
     Dosage: 1000 MG, DAILY
     Route: 048
  4. ESCITALOPRAM [Concomitant]
     Indication: AFFECTIVE DISORDER
     Dosage: 10 MG, DAILY
     Route: 048
  5. SIMVASTATIN [Concomitant]
     Indication: BLOOD CHOLESTEROL INCREASED
     Dosage: 20 MG, DAILY
     Route: 048
  6. SENNA [Concomitant]
     Indication: CONSTIPATION
     Dosage: UNK
     Route: 048
  7. FOLIC ACID [Concomitant]
     Indication: BLOOD FOLATE DECREASED
     Dosage: 5 MG, DAILY

REACTIONS (9)
  - Asthenia [Unknown]
  - Hyporesponsive to stimuli [Unknown]
  - Confusional state [Recovered/Resolved]
  - Agitation [Unknown]
  - Eating disorder [Recovered/Resolved]
  - Coordination abnormal [Recovered/Resolved]
  - Hemiparesis [Unknown]
  - Incontinence [Recovered/Resolved]
  - Hallucination [Recovered/Resolved]
